FAERS Safety Report 12590849 (Version 1)
Quarter: 2016Q3

REPORT INFORMATION
  Report Type: Report from Study
  Country: US (occurrence: US)
  Receive Date: 20160726
  Receipt Date: 20160726
  Transmission Date: 20161109
  Serious: Yes (Other)
  Sender: FDA-Public Use
  Company Number: US-AMGEN-USASL2016094749

PATIENT
  Age: 55 Year
  Sex: Female

DRUGS (1)
  1. ENBREL [Suspect]
     Active Substance: ETANERCEPT
     Indication: PRODUCT USED FOR UNKNOWN INDICATION
     Dosage: UNK
     Route: 065

REACTIONS (7)
  - Nasal septum deviation [Unknown]
  - Squamous cell carcinoma of the tongue [Unknown]
  - Arthrodesis [Unknown]
  - Nasal polypectomy [Unknown]
  - Sinusitis [Unknown]
  - Mouth injury [Unknown]
  - Bone disorder [Unknown]

NARRATIVE: CASE EVENT DATE: 2014
